FAERS Safety Report 8402985 (Version 8)
Quarter: 2014Q1

REPORT INFORMATION
  Report Type: Spontaneous
  Country: US (occurrence: US)
  Receive Date: 20120213
  Receipt Date: 20140102
  Transmission Date: 20141002
  Serious: Yes (Hospitalization, Other)
  Sender: FDA-Public Use
  Company Number: US-GLAXOSMITHKLINE-A0965398A

PATIENT
  Age: 62 Year
  Sex: Male

DRUGS (3)
  1. FLOLAN [Suspect]
     Indication: PULMONARY HYPERTENSION
     Dosage: 32NGKM CONTINUOUS
     Route: 042
     Dates: start: 20111110
  2. ADCIRCA [Concomitant]
  3. WARFARIN [Concomitant]

REACTIONS (18)
  - Syncope [Unknown]
  - Dizziness [Unknown]
  - Hypotension [Unknown]
  - Infection [Unknown]
  - Heart rate increased [Unknown]
  - Faeces discoloured [Unknown]
  - Hypoaesthesia [Unknown]
  - Platelet count decreased [Unknown]
  - Blood test abnormal [Unknown]
  - Anaemia [Unknown]
  - Hypertension [Unknown]
  - Dyspnoea [Unknown]
  - Central venous catheterisation [Unknown]
  - Device leakage [Unknown]
  - Haemoglobin decreased [Unknown]
  - Device related infection [Unknown]
  - Catheter site erythema [Unknown]
  - Therapy change [Unknown]
